FAERS Safety Report 12618554 (Version 1)
Quarter: 2016Q3

REPORT INFORMATION
  Report Type: Spontaneous
  Country: CN (occurrence: CN)
  Receive Date: 20160803
  Receipt Date: 20160803
  Transmission Date: 20161109
  Serious: Yes (Death, Other)
  Sender: FDA-Public Use
  Company Number: CN-PFIZER INC-2016361278

PATIENT
  Age: 45 Year
  Sex: Female

DRUGS (1)
  1. XALKORI [Suspect]
     Active Substance: CRIZOTINIB
     Indication: LUNG NEOPLASM MALIGNANT
     Dosage: 2 CAPSULES PER DAY (250 MG, 60 CAPSULES PER BOTTLE)

REACTIONS (4)
  - Lung neoplasm malignant [Fatal]
  - Interstitial lung disease [Unknown]
  - Renal hydrocele [Unknown]
  - Disease progression [Fatal]
